FAERS Safety Report 20319612 (Version 1)
Quarter: 2022Q1

REPORT INFORMATION
  Report Type: Spontaneous
  Country: ES (occurrence: ES)
  Receive Date: 20220110
  Receipt Date: 20220110
  Transmission Date: 20220423
  Serious: Yes (Other)
  Sender: FDA-Public Use
  Company Number: ES-SUN PHARMACEUTICAL INDUSTRIES LTD-2021R1-322904

PATIENT
  Age: 20 Year
  Sex: Female

DRUGS (5)
  1. ASPIRIN [Suspect]
     Active Substance: ASPIRIN
     Indication: Thrombosis
     Dosage: 150 MG
     Route: 065
  2. ENOXAPARIN SODIUM [Suspect]
     Active Substance: ENOXAPARIN SODIUM
     Indication: Placental infarction
     Dosage: 80 MILLIGRAM, DAILY
     Route: 065
  3. METHYLPREDNISOLONE [Suspect]
     Active Substance: METHYLPREDNISOLONE
     Indication: Placental infarction
     Dosage: 500 MILLIGRAM, DAILY
     Route: 042
  4. PREDNISONE [Suspect]
     Active Substance: PREDNISONE
     Indication: Placental infarction
     Dosage: 60 MILLIGRAM, DAILY
     Route: 065
  5. TINZAPARIN [Suspect]
     Active Substance: TINZAPARIN
     Indication: Thrombosis
     Dosage: 10,000 IU
     Route: 065

REACTIONS (3)
  - Exposure during pregnancy [Unknown]
  - Activated partial thromboplastin time prolonged [Unknown]
  - Premature delivery [Unknown]
